FAERS Safety Report 4322007-5 (Version None)
Quarter: 2004Q1

REPORT INFORMATION
  Report Type: 
  Country: None (occurrence: None)
  Receive Date: 20040319
  Receipt Date: 20040304
  Transmission Date: 20041129
  Serious: Yes (Hospitalization)
  Sender: FDA-Public Use
  Company Number: 2004-DE-01024GD(0)

PATIENT
  Age: 82 Year
  Sex: Female

DRUGS (4)
  1. LITHIUM CARBONATE [Suspect]
     Indication: MAJOR DEPRESSION
     Dosage: 450 MG (IN DIVIDED DOSES)
  2. CLOZAPINE [Suspect]
     Indication: MAJOR DEPRESSION
     Dosage: 150 MCG
  3. ARIPIPRAZOLE (ARIPIPRAZOLE) [Suspect]
     Indication: MAJOR DEPRESSION
     Dosage: 15 MG
  4. VENLAFAXINE (VENLAFAXINE) [Concomitant]

REACTIONS (8)
  - CEREBROVASCULAR DISORDER [None]
  - COGWHEEL RIGIDITY [None]
  - DELUSION [None]
  - DYSARTHRIA [None]
  - GAIT DISTURBANCE [None]
  - PLEUROTHOTONUS [None]
  - THERAPY NON-RESPONDER [None]
  - TREMOR [None]
